FAERS Safety Report 14659809 (Version 8)
Quarter: 2022Q4

REPORT INFORMATION
  Report Type: Spontaneous
  Country: IT (occurrence: None)
  Receive Date: 20180320
  Receipt Date: 20221208
  Transmission Date: 20230113
  Serious: Yes (Hospitalization, Other)
  Sender: FDA-Public Use
  Company Number: 2018SE31874

PATIENT
  Age: 51 Year
  Sex: Female

DRUGS (4)
  1. QUETIAPINE FUMARATE [Suspect]
     Active Substance: QUETIAPINE FUMARATE
     Indication: Self-injurious ideation
     Dosage: 60.0DF ONCE/SINGLE ADMINISTRATION
     Route: 048
     Dates: start: 20170805, end: 20170805
  2. EBASTINE [Suspect]
     Active Substance: EBASTINE
     Indication: Self-injurious ideation
     Dosage: 3.0DF ONCE/SINGLE ADMINISTRATION
     Route: 048
     Dates: start: 20170805, end: 20170805
  3. CETIRIZINE\PSEUDOEPHEDRINE [Suspect]
     Active Substance: CETIRIZINE\PSEUDOEPHEDRINE
     Indication: Self-injurious ideation
     Dosage: STRENGTH 5 MG/120MG12.0DF ONCE/SINGLE ADMINISTRATION
     Route: 048
     Dates: start: 20170805, end: 20170805
  4. VENLAFAXINE HYDROCHLORIDE [Suspect]
     Active Substance: VENLAFAXINE HYDROCHLORIDE
     Indication: Self-injurious ideation
     Dosage: 5.0DF ONCE/SINGLE ADMINISTRATION
     Route: 048
     Dates: start: 20170805, end: 20170805

REACTIONS (4)
  - Intentional overdose [Unknown]
  - Drug abuse [Unknown]
  - Coma [Recovered/Resolved]
  - Self-injurious ideation [Recovered/Resolved]

NARRATIVE: CASE EVENT DATE: 20170805
